FAERS Safety Report 10474736 (Version 5)
Quarter: 2014Q4

REPORT INFORMATION
  Report Type: Spontaneous
  Country: US (occurrence: US)
  Receive Date: 20140925
  Receipt Date: 20141224
  Transmission Date: 20150528
  Serious: Yes (Other)
  Sender: FDA-Public Use
  Company Number: US-UCBSA-2014011562

PATIENT
  Age: 48 Year
  Sex: Female
  Weight: 65.76 kg

DRUGS (3)
  1. VIMPAT [Suspect]
     Active Substance: LACOSAMIDE
     Indication: SEIZURE
     Dosage: 200 MG/ 2 DAILY
     Route: 048
     Dates: start: 201405
  2. TRILEPTAL [Concomitant]
     Active Substance: OXCARBAZEPINE
     Indication: SEIZURE
     Dosage: 300 MG, 2X/DAY (BID) (1.5 IN AM AND 1.5 IN PM)
     Route: 048
  3. LAMICTAL [Concomitant]
     Active Substance: LAMOTRIGINE
     Indication: SEIZURE
     Dosage: 100 NG, ONCE DAILY (QD)
     Route: 048

REACTIONS (6)
  - Petit mal epilepsy [Recovered/Resolved]
  - Asthma [Recovering/Resolving]
  - Tremor [Recovered/Resolved]
  - Seizure [Recovered/Resolved]
  - Dizziness [Recovered/Resolved]
  - Loss of consciousness [Not Recovered/Not Resolved]

NARRATIVE: CASE EVENT DATE: 201405
